FAERS Safety Report 4444694-3 (Version None)
Quarter: 2004Q3

REPORT INFORMATION
  Report Type: 
  Country: None (occurrence: None)
  Receive Date: 20040903
  Receipt Date: 20040824
  Transmission Date: 20050211
  Serious: Yes (Death)
  Sender: FDA-Public Use
  Company Number: 2004052771

PATIENT
  Age: 79 Year
  Sex: Female

DRUGS (5)
  1. ACCUPRIL [Suspect]
     Indication: HYPERTENSION
     Dosage: 40 MG (20 MG, 2 IN 1 D), ORAL
     Route: 048
     Dates: start: 20020901
  2. WARFARIN SODIUM [Concomitant]
  3. ASPIRIN [Concomitant]
  4. GLYBURIDE [Concomitant]
  5. OSYROL-LASIX (FUROSEMIDE, SPIRONOLACTONE) [Concomitant]

REACTIONS (1)
  - HYPERTENSIVE CARDIOMYOPATHY [None]
